FAERS Safety Report 16743839 (Version 1)
Quarter: 2019Q3

REPORT INFORMATION
  Report Type: Spontaneous
  Country: US (occurrence: US)
  Receive Date: 20190827
  Receipt Date: 20190827
  Transmission Date: 20191005
  Serious: No
  Sender: FDA-Public Use
  Company Number: US-BIOCON-BCN-2019-000257

PATIENT
  Weight: 62.65 kg

DRUGS (4)
  1. FLOMAX [Concomitant]
     Active Substance: TAMSULOSIN HYDROCHLORIDE
     Indication: PRODUCT USED FOR UNKNOWN INDICATION
  2. ROSUVASTATIN CALCIUM. [Suspect]
     Active Substance: ROSUVASTATIN CALCIUM
     Indication: ARTERIOSCLEROSIS CORONARY ARTERY
     Route: 048
     Dates: start: 201808
  3. IBUPROFEN. [Concomitant]
     Active Substance: IBUPROFEN
     Indication: MYOFASCIAL PAIN SYNDROME
  4. LORAZEPAM. [Concomitant]
     Active Substance: LORAZEPAM
     Indication: ANXIETY

REACTIONS (2)
  - Gastrooesophageal reflux disease [Unknown]
  - Abdominal discomfort [Not Recovered/Not Resolved]
